FAERS Safety Report 5122826-1 (Version None)
Quarter: 2006Q4

REPORT INFORMATION
  Report Type: 
  Country: None (occurrence: None)
  Receive Date: 20061005
  Receipt Date: 20061005
  Transmission Date: 20070319
  Serious: No
  Sender: FDA-Public Use
  Company Number: None

PATIENT
  Age: 54 Year
  Sex: Female
  Weight: 90.2658 kg

DRUGS (2)
  1. SERTRALINE [Suspect]
     Indication: DEPRESSION
     Dosage: ONE P QD
     Route: 048
     Dates: start: 20060914, end: 20060921
  2. SERTRALINE [Suspect]
     Indication: MIGRAINE
     Dosage: ONE P QD
     Route: 048
     Dates: start: 20060914, end: 20060921

REACTIONS (2)
  - HEADACHE [None]
  - PHARMACEUTICAL PRODUCT COMPLAINT [None]
